FAERS Safety Report 10026460 (Version 1)
Quarter: 2014Q1

REPORT INFORMATION
  Report Type: Spontaneous
  Country: SE (occurrence: SE)
  Receive Date: 20140321
  Receipt Date: 20140321
  Transmission Date: 20141002
  Serious: Yes (Hospitalization, Other)
  Sender: FDA-Public Use
  Company Number: SE-PFIZER INC-2014080949

PATIENT
  Age: 81 Year
  Sex: Female

DRUGS (9)
  1. TRIATEC [Suspect]
     Indication: HYPERTENSION
     Dosage: UNK
     Route: 048
     Dates: start: 20130425, end: 20131115
  2. FURIX [Suspect]
     Indication: LOCAL SWELLING
     Dosage: UNK, AS NEEDED
     Route: 048
     Dates: start: 20130701, end: 20131115
  3. KALCIPOS-D [Concomitant]
  4. WARAN [Concomitant]
  5. FOLACIN [Concomitant]
  6. PROPYDERM [Concomitant]
  7. MILDISON LIPID [Concomitant]
  8. ALENDRONIC ACID [Concomitant]
  9. ALVEDON [Concomitant]

REACTIONS (3)
  - Hypotension [Unknown]
  - Fall [Unknown]
  - Troponin increased [Unknown]
